FAERS Safety Report 7904966-4 (Version None)
Quarter: 2011Q4

REPORT INFORMATION
  Report Type: 
  Country: None (occurrence: None)
  Receive Date: 20111109
  Receipt Date: 20110721
  Transmission Date: 20120403
  Serious: No
  Sender: FDA-Public Use
  Company Number: US-BAYER-2011-065940

PATIENT
  Sex: Female

DRUGS (2)
  1. ALEVE (CAPLET) [Suspect]
     Indication: DYSMENORRHOEA
     Dosage: 1 DF, ONCE
     Dates: start: 20110720
  2. ACETAMINOPHEN [Concomitant]
     Indication: TOOTHACHE
     Dosage: 1 UNK, UNK

REACTIONS (1)
  - DRUG INEFFECTIVE [None]
